FAERS Safety Report 7501422-2 (Version None)
Quarter: 2011Q2

REPORT INFORMATION
  Report Type: 
  Country: None (occurrence: None)
  Receive Date: 20110524
  Receipt Date: 20110518
  Transmission Date: 20111010
  Serious: Yes (Other)
  Sender: FDA-Public Use
  Company Number: US-B.I. PHARMACEUTICALS,INC./RIDGEFIELD-2011-BP-00091BP

PATIENT

DRUGS (1)
  1. PRADAXA [Suspect]
     Dates: start: 20101201, end: 20101201

REACTIONS (2)
  - ENDOMETRIAL CANCER RECURRENT [None]
  - VAGINAL HAEMORRHAGE [None]
